FAERS Safety Report 23762732 (Version 1)
Quarter: 2024Q2

REPORT INFORMATION
  Report Type: Spontaneous
  Country: US (occurrence: US)
  Receive Date: 20240419
  Receipt Date: 20240419
  Transmission Date: 20240716
  Serious: No
  Sender: FDA-Public Use
  Company Number: US-Calliditas-2024CAL00568

PATIENT
  Age: 66 Year
  Sex: Female

DRUGS (1)
  1. TARPEYO [Suspect]
     Active Substance: BUDESONIDE
     Indication: IgA nephropathy
     Dosage: 16MG (4MG CAPSULES) ONCE DAILY
     Route: 048
     Dates: start: 20240319

REACTIONS (3)
  - Nausea [Unknown]
  - Clostridium difficile colitis [Unknown]
  - Therapy interrupted [Recovered/Resolved]
